FAERS Safety Report 24042475 (Version 3)
Quarter: 2024Q3

REPORT INFORMATION
  Report Type: Report from Study
  Country: US (occurrence: US)
  Receive Date: 20240702
  Receipt Date: 20240731
  Transmission Date: 20241017
  Serious: Yes (Hospitalization, Other)
  Sender: APELLIS PHARMACEUTICALS
  Company Number: US-APELLIS-2024-APL-0000320

PATIENT

DRUGS (1)
  1. PEGCETACOPLAN [Suspect]
     Active Substance: PEGCETACOPLAN
     Indication: Paroxysmal nocturnal haemoglobinuria
     Dosage: 1080MG/20ML TWICE A WEEK
     Route: 058
     Dates: start: 20220107

REACTIONS (14)
  - Dementia [Unknown]
  - Confusional state [Not Recovered/Not Resolved]
  - Agitation [Unknown]
  - Psychotic disorder [Unknown]
  - Mental status changes [Not Recovered/Not Resolved]
  - Cerebrospinal fluid leakage [Recovering/Resolving]
  - Delirium [Unknown]
  - Otorrhoea [Unknown]
  - Underdose [Unknown]
  - Insomnia [Unknown]
  - Aggression [Not Recovered/Not Resolved]
  - Fall [Unknown]
  - Dysuria [Unknown]
  - Dizziness [Unknown]

NARRATIVE: CASE EVENT DATE: 20240614
